FAERS Safety Report 25465992 (Version 1)
Quarter: 2025Q2

REPORT INFORMATION
  Report Type: Spontaneous
  Country: PL (occurrence: PL)
  Receive Date: 20250623
  Receipt Date: 20250623
  Transmission Date: 20250716
  Serious: Yes (Other)
  Sender: BRISTOL-MYERS SQUIBB COMPANY
  Company Number: PL-BRISTOL-MYERS SQUIBB COMPANY-2025-085071

PATIENT
  Age: 70 Year
  Sex: Female

DRUGS (1)
  1. NIVOLUMAB [Suspect]
     Active Substance: NIVOLUMAB
     Indication: Epithelioid mesothelioma
     Dates: start: 20240301

REACTIONS (11)
  - Hypothyroidism [Recovering/Resolving]
  - Hypotension [Recovering/Resolving]
  - Swelling [Recovering/Resolving]
  - Colon cancer [Unknown]
  - Meningioma [Recovering/Resolving]
  - Blood uric acid increased [Recovering/Resolving]
  - Tri-iodothyronine free increased [Recovering/Resolving]
  - Blood prolactin increased [Recovering/Resolving]
  - Cortisol decreased [Recovering/Resolving]
  - Blood follicle stimulating hormone increased [Recovering/Resolving]
  - Peripheral swelling [Recovering/Resolving]

NARRATIVE: CASE EVENT DATE: 20241101
